FAERS Safety Report 9856143 (Version 1)
Quarter: 2014Q1

REPORT INFORMATION
  Report Type: Report from Study
  Country: GR (occurrence: GR)
  Receive Date: 20140130
  Receipt Date: 20140130
  Transmission Date: 20141002
  Serious: Yes (Hospitalization)
  Sender: FDA-Public Use
  Company Number: GR-ELI_LILLY_AND_COMPANY-GR201401007938

PATIENT
  Age: 76 Year
  Sex: Male
  Weight: 73 kg

DRUGS (10)
  1. GEMCITABINE HYDROCHLORIDE [Suspect]
     Indication: PANCREATIC CARCINOMA METASTATIC
     Dosage: 1000 MG, SINGLE
     Dates: start: 20130312
  2. GEMCITABINE HYDROCHLORIDE [Suspect]
     Dosage: 920 MG, SINGLE EVER SECOND WEEK
     Route: 042
     Dates: start: 20130409
  3. GEMCITABINE HYDROCHLORIDE [Suspect]
     Dosage: 1500 MG, EVERY SECOND WEEK
     Route: 042
     Dates: start: 20130423
  4. TEMSIROLIMUS [Suspect]
     Indication: PANCREATIC CARCINOMA METASTATIC
     Dosage: 25 MG, WEEKLY (1/W)
     Route: 042
     Dates: start: 20130409
  5. TEMSIROLIMUS [Suspect]
     Dosage: 20 MG, WEEKLY (1/W)
     Dates: start: 20130423
  6. TEMSIROLIMUS [Suspect]
     Dosage: 25 MG, WEEKLY (1/W)
     Route: 042
     Dates: start: 20130312
  7. TEMSIROLIMUS [Suspect]
     Dosage: 20 MG, WEEKLY (1/W)
     Dates: start: 20130514
  8. TEMSIROLIMUS [Suspect]
     Dosage: 20 MG, WEEKLY (1/W)
     Dates: start: 20130521
  9. MESULID [Concomitant]
     Indication: PARANEOPLASTIC SYNDROME
     Dosage: UNK
     Dates: start: 20130423, end: 20130504
  10. MICARDIS [Concomitant]
     Indication: HYPERTENSION
     Dosage: UNK

REACTIONS (1)
  - Pneumonia [Recovered/Resolved]
